FAERS Safety Report 5098029-6 (Version None)
Quarter: 2006Q3

REPORT INFORMATION
  Report Type: 
  Country: None (occurrence: None)
  Receive Date: 20060906
  Receipt Date: 20060824
  Transmission Date: 20061208
  Serious: Yes (Other)
  Sender: FDA-Public Use
  Company Number: US-AVENTIS-200618937GDDC

PATIENT
  Age: 35 Year
  Sex: Female

DRUGS (2)
  1. FLUOROURACIL [Suspect]
     Indication: SQUAMOUS CELL CARCINOMA
     Dosage: DOSE: 1500 MG DAILY FOR 4 DAYS BY CONTINUOUS IV INFUSION
     Route: 041
  2. MITOMYCIN [Concomitant]
     Indication: SQUAMOUS CELL CARCINOMA
     Dosage: DOSE: 5 MG/M2
     Route: 042

REACTIONS (4)
  - DRUG TOXICITY [None]
  - ENCEPHALOPATHY [None]
  - NEUROTOXICITY [None]
  - REVERSIBLE POSTERIOR LEUKOENCEPHALOPATHY SYNDROME [None]
